FAERS Safety Report 25775469 (Version 2)
Quarter: 2025Q3

REPORT INFORMATION
  Report Type: Spontaneous
  Country: AU (occurrence: AU)
  Receive Date: 20250909
  Receipt Date: 20250923
  Transmission Date: 20251021
  Serious: Yes (Other)
  Sender: TEVA
  Company Number: AU-TEVA-VS-3368965

PATIENT
  Age: 43 Year
  Sex: Male

DRUGS (4)
  1. ZOLEDRONIC ACID [Suspect]
     Active Substance: ZOLEDRONIC ACID
     Indication: Pain
     Route: 065
  2. DENOSUMAB [Suspect]
     Active Substance: DENOSUMAB
     Indication: Pain management
     Route: 030
  3. DENOSUMAB [Suspect]
     Active Substance: DENOSUMAB
     Indication: Pain management
     Route: 030
  4. LANREOTIDE [Concomitant]
     Active Substance: LANREOTIDE
     Indication: Blood growth hormone increased
     Route: 065

REACTIONS (4)
  - Drug ineffective [Unknown]
  - Hypercalcaemia [Unknown]
  - Hypocalcaemia [Recovered/Resolved]
  - Rebound effect [Unknown]
